FAERS Safety Report 16392748 (Version 1)
Quarter: 2019Q2

REPORT INFORMATION
  Report Type: Report from Study
  Country: JP (occurrence: JP)
  Receive Date: 20190605
  Receipt Date: 20190605
  Transmission Date: 20190711
  Serious: Yes (Other)
  Sender: FDA-Public Use
  Company Number: JP-ROCHE-1841381

PATIENT

DRUGS (3)
  1. CISPLATIN. [Suspect]
     Active Substance: CISPLATIN
     Indication: NON-SMALL CELL LUNG CANCER
     Dosage: ON DAY 8.
     Route: 042
  2. TS-1 [Suspect]
     Active Substance: GIMERACIL\OTERACIL\TEGAFUR
     Indication: NON-SMALL CELL LUNG CANCER
     Dosage: DAY 1-14
     Route: 048
  3. BEVACIZUMAB. [Suspect]
     Active Substance: BEVACIZUMAB
     Indication: NON-SMALL CELL LUNG CANCER
     Dosage: DAY 8
     Route: 042

REACTIONS (21)
  - Diarrhoea [Unknown]
  - Nausea [Unknown]
  - Hyperuricaemia [Unknown]
  - Proteinuria [Unknown]
  - Decreased appetite [Unknown]
  - Neutropenia [Unknown]
  - Hypoglycaemia [Unknown]
  - Febrile neutropenia [Unknown]
  - Hypoalbuminaemia [Unknown]
  - Large intestine perforation [Unknown]
  - Small intestinal perforation [Unknown]
  - Lung infection [Unknown]
  - Hyponatraemia [Unknown]
  - Anaemia [Unknown]
  - Hypertension [Unknown]
  - Hypertriglyceridaemia [Unknown]
  - Embolism [Unknown]
  - Leukopenia [Unknown]
  - Hyperkalaemia [Unknown]
  - Hypocalcaemia [Unknown]
  - Tumour pain [Unknown]
